FAERS Safety Report 20633586 (Version 2)
Quarter: 2022Q2

REPORT INFORMATION
  Report Type: Spontaneous
  Country: US (occurrence: US)
  Receive Date: 20220324
  Receipt Date: 20220405
  Transmission Date: 20220721
  Serious: Yes (Death, Hospitalization)
  Sender: FDA-Public Use
  Company Number: US-TEVA-2022-US-2018885

PATIENT
  Age: 74 Year
  Sex: Female

DRUGS (6)
  1. PREDNISONE [Suspect]
     Active Substance: PREDNISONE
     Indication: Urinary tract infection
     Route: 048
  2. PREDNISONE [Suspect]
     Active Substance: PREDNISONE
     Indication: Toxic epidermal necrolysis
  3. CYCLOSPORINE [Suspect]
     Active Substance: CYCLOSPORINE
     Indication: Toxic epidermal necrolysis
     Dosage: 3 MG/KG DAILY; 81 MG EVERY 12 HOURS
     Route: 065
  4. SILVER [Suspect]
     Active Substance: SILVER
     Indication: Wound treatment
     Route: 061
  5. SILVER [Suspect]
     Active Substance: SILVER
     Indication: Wound haemorrhage
  6. ETANERCEPT [Suspect]
     Active Substance: ETANERCEPT
     Indication: Toxic epidermal necrolysis
     Route: 065

REACTIONS (7)
  - Infection [Fatal]
  - Bacteraemia [Unknown]
  - Alpha haemolytic streptococcal infection [Unknown]
  - Enterobacter infection [Unknown]
  - Staphylococcal infection [Unknown]
  - Staphylococcal infection [Unknown]
  - Drug ineffective [Unknown]
